FAERS Safety Report 4885116-8 (Version None)
Quarter: 2006Q1

REPORT INFORMATION
  Report Type: 
  Country: None (occurrence: None)
  Receive Date: 20060117
  Receipt Date: 20060105
  Transmission Date: 20060701
  Serious: Yes (Hospitalization)
  Sender: FDA-Public Use
  Company Number: 2006003409

PATIENT
  Age: 50 Year
  Sex: Female

DRUGS (1)
  1. CHLORPHENIRAMINE/PARACETAMOL/PSEUDOEPHEDRINE (PARACETAMOL, PSEUDOEPHED [Suspect]
     Indication: RHINITIS
     Dosage: UNSPECIFIED AMOUNT TWICE DAILY; ORAL
     Route: 048

REACTIONS (1)
  - COLITIS ISCHAEMIC [None]
